FAERS Safety Report 9689191 (Version 2)
Quarter: 2013Q4

REPORT INFORMATION
  Report Type: Spontaneous
  Country: DE (occurrence: DE)
  Receive Date: 20131114
  Receipt Date: 20131121
  Transmission Date: 20140711
  Serious: Yes (Hospitalization)
  Sender: FDA-Public Use
  Company Number: DE-JNJFOC-20131101928

PATIENT
  Age: 77 Year
  Sex: Male

DRUGS (5)
  1. HALDOL [Suspect]
     Indication: RESTLESSNESS
     Route: 048
     Dates: start: 2011, end: 20130722
  2. DIPIPERON [Suspect]
     Indication: PRODUCT USED FOR UNKNOWN INDICATION
     Route: 048
     Dates: end: 20130722
  3. REMINYL [Suspect]
     Indication: PRODUCT USED FOR UNKNOWN INDICATION
     Route: 048
  4. FUROSEMIDE [Concomitant]
     Route: 048
  5. ASS [Concomitant]
     Route: 048

REACTIONS (4)
  - Pleurothotonus [Recovered/Resolved]
  - Restlessness [Not Recovered/Not Resolved]
  - Off label use [Unknown]
  - Drug ineffective [Unknown]
